FAERS Safety Report 10067191 (Version 1)
Quarter: 2014Q2

REPORT INFORMATION
  Report Type: Spontaneous
  Country: US (occurrence: None)
  Receive Date: 20140408
  Receipt Date: 20140408
  Transmission Date: 20141212
  Serious: Yes (Other)
  Sender: FDA-Public Use
  Company Number: None

PATIENT
  Age: 25 Year
  Sex: Female
  Weight: 83.92 kg

DRUGS (1)
  1. CEPHALEXIN [Suspect]
     Indication: LACERATION
     Route: 048
     Dates: start: 20140402, end: 20140406

REACTIONS (6)
  - Diarrhoea [None]
  - Pruritus [None]
  - Fungal infection [None]
  - Breast feeding [None]
  - Vomiting projectile [None]
  - Faeces discoloured [None]
